FAERS Safety Report 14849449 (Version 1)
Quarter: 2018Q2

REPORT INFORMATION
  Report Type: Spontaneous
  Country: US (occurrence: US)
  Receive Date: 20180504
  Receipt Date: 20180504
  Transmission Date: 20180711
  Serious: Yes (Hospitalization, Other)
  Sender: FDA-Public Use
  Company Number: US-IMPAX LABORATORIES, INC-2018-IPXL-01467

PATIENT
  Age: 52 Year
  Sex: Male

DRUGS (5)
  1. VANCOMYCIN [Suspect]
     Active Substance: VANCOMYCIN
     Indication: PRODUCT USED FOR UNKNOWN INDICATION
     Dosage: UNK
     Route: 065
  2. CLINDAMYCIN. [Suspect]
     Active Substance: CLINDAMYCIN
     Indication: PRODUCT USED FOR UNKNOWN INDICATION
     Dosage: UNK
     Route: 065
  3. HYDROCORTISONE. [Suspect]
     Active Substance: HYDROCORTISONE
     Indication: PRODUCT USED FOR UNKNOWN INDICATION
     Dosage: UNK
     Route: 065
  4. PIPERACILLIN [Suspect]
     Active Substance: PIPERACILLIN
     Indication: PRODUCT USED FOR UNKNOWN INDICATION
     Dosage: UNK
     Route: 065
  5. SALINE [Suspect]
     Active Substance: SODIUM CHLORIDE
     Indication: PRODUCT USED FOR UNKNOWN INDICATION
     Dosage: 2 L, SALINE
     Route: 065

REACTIONS (2)
  - Mediastinitis [Recovering/Resolving]
  - Toxic shock syndrome streptococcal [Recovering/Resolving]
